FAERS Safety Report 20569165 (Version 1)
Quarter: 2022Q1

REPORT INFORMATION
  Report Type: Spontaneous
  Country: US (occurrence: None)
  Receive Date: 20220308
  Receipt Date: 20220308
  Transmission Date: 20220423
  Serious: No
  Sender: FDA-Public Use
  Company Number: US-ROCHE-2957143

PATIENT
  Age: 40 Year
  Sex: Female
  Weight: 102.15 kg

DRUGS (4)
  1. ENSPRYNG [Suspect]
     Active Substance: SATRALIZUMAB-MWGE
     Indication: Neuromyelitis optica spectrum disorder
     Dosage: YES
     Route: 058
     Dates: start: 202107
  2. VITAMIN C [Concomitant]
     Active Substance: ASCORBIC ACID
     Dosage: YES
     Route: 065
     Dates: start: 202107
  3. BACLOFEN [Concomitant]
     Active Substance: BACLOFEN
     Indication: Muscle spasms
     Dosage: YES
     Route: 048
     Dates: start: 2018
  4. HYDROXYCHLOROQUINE [Concomitant]
     Active Substance: HYDROXYCHLOROQUINE
     Dosage: YES
     Route: 048
     Dates: start: 2018

REACTIONS (3)
  - Product quality issue [Unknown]
  - Product dose omission issue [Unknown]
  - No adverse event [Unknown]

NARRATIVE: CASE EVENT DATE: 20211111
